FAERS Safety Report 21576544 (Version 2)
Quarter: 2022Q4

REPORT INFORMATION
  Report Type: Spontaneous
  Country: US (occurrence: US)
  Receive Date: 20221110
  Receipt Date: 20221216
  Transmission Date: 20230112
  Serious: Yes (Hospitalization, Other)
  Sender: FDA-Public Use
  Company Number: US-BRISTOL-MYERS SQUIBB COMPANY-2022-135464

PATIENT
  Age: 65 Year
  Sex: Female

DRUGS (2)
  1. REVLIMID [Suspect]
     Active Substance: LENALIDOMIDE
     Indication: Plasma cell myeloma in remission
     Route: 048
     Dates: start: 202108
  2. REVLIMID [Suspect]
     Active Substance: LENALIDOMIDE
     Dosage: TAKE 1 CAPSULE BY MOUTH ONCE DAILY FOR 21 DAYS ON AND 7 DAYS OFF.
     Route: 048
     Dates: start: 20220714

REACTIONS (12)
  - Illness [Unknown]
  - Gait disturbance [Unknown]
  - Anosmia [Unknown]
  - Ageusia [Unknown]
  - Pneumonia [Unknown]
  - Post-acute COVID-19 syndrome [Unknown]
  - Herpes zoster [Unknown]
  - Weight decreased [Unknown]
  - Anal incontinence [Unknown]
  - Respiratory syncytial virus infection [Unknown]
  - Urinary incontinence [Unknown]
  - Decreased appetite [Unknown]

NARRATIVE: CASE EVENT DATE: 20221014
